FAERS Safety Report 12647820 (Version 1)
Quarter: 2016Q3

REPORT INFORMATION
  Report Type: Spontaneous
  Country: US (occurrence: US)
  Receive Date: 20160812
  Receipt Date: 20160812
  Transmission Date: 20161109
  Serious: Yes (Hospitalization, Other)
  Sender: FDA-Public Use
  Company Number: US-ENDO PHARMACEUTICALS INC.-2016-004890

PATIENT
  Age: 51 Year
  Sex: Female
  Weight: 88.08 kg

DRUGS (3)
  1. OXYCODONE W/APAP [Concomitant]
     Active Substance: ACETAMINOPHEN\OXYCODONE HYDROCHLORIDE
     Indication: BREAKTHROUGH PAIN
     Dosage: 10/325MG TABLET
     Route: 048
     Dates: start: 201210
  2. MORPHINE SULFATE ER 60MG [Suspect]
     Active Substance: MORPHINE SULFATE
     Route: 048
     Dates: start: 20120310, end: 2013
  3. MORPHINE SULFATE ER 60MG [Suspect]
     Active Substance: MORPHINE SULFATE
     Indication: BACK PAIN
     Dosage: 60 MG EVERY 12 HOURS AND SOMETIMES EVERY EIGHT HOURS AS NEEDED
     Route: 048
     Dates: start: 2013

REACTIONS (15)
  - Head injury [Not Recovered/Not Resolved]
  - Haematoma [Not Recovered/Not Resolved]
  - Confusional state [Recovering/Resolving]
  - Injury [Not Recovered/Not Resolved]
  - Wrong technique in product usage process [Unknown]
  - Syncope [Not Recovered/Not Resolved]
  - Lethargy [Recovered/Resolved]
  - Product quality issue [Unknown]
  - Constipation [Not Recovered/Not Resolved]
  - Drug dose omission [Unknown]
  - Loss of consciousness [Recovered/Resolved]
  - Dizziness [Not Recovered/Not Resolved]
  - Balance disorder [Not Recovered/Not Resolved]
  - Fall [Unknown]
  - Drug screen negative [Unknown]

NARRATIVE: CASE EVENT DATE: 2015
